FAERS Safety Report 19166501 (Version 1)
Quarter: 2021Q2

REPORT INFORMATION
  Report Type: Spontaneous
  Country: US (occurrence: US)
  Receive Date: 20210421
  Receipt Date: 20210421
  Transmission Date: 20210717
  Serious: No
  Sender: FDA-Public Use
  Company Number: None

PATIENT
  Age: 62 Year
  Sex: Female
  Weight: 71.1 kg

DRUGS (3)
  1. ASPIRIN. [Concomitant]
     Active Substance: ASPIRIN
  2. PRAVASTATIN SODIUM 10MG [Suspect]
     Active Substance: PRAVASTATIN SODIUM
     Indication: BLOOD CHOLESTEROL INCREASED
     Dosage: ?          QUANTITY:1 TABLET(S);?
     Route: 048
     Dates: start: 20210416, end: 20210418
  3. LOSARTAN 25MG DAILY [Concomitant]
     Active Substance: LOSARTAN

REACTIONS (9)
  - Urinary tract disorder [None]
  - Dizziness [None]
  - Headache [None]
  - Arthralgia [None]
  - Dyspnoea [None]
  - Fatigue [None]
  - Myalgia [None]
  - Pyrexia [None]
  - Chills [None]

NARRATIVE: CASE EVENT DATE: 20210417
